FAERS Safety Report 8431500-5 (Version None)
Quarter: 2012Q2

REPORT INFORMATION
  Report Type: 
  Country: None (occurrence: None)
  Receive Date: 20120613
  Receipt Date: 20120606
  Transmission Date: 20120825
  Serious: Yes (Life-Threatening, Hospitalization)
  Sender: FDA-Public Use
  Company Number: GB-SANOFI-AVENTIS-2012SA037838

PATIENT
  Age: 74 Year
  Sex: Male

DRUGS (10)
  1. ASPIRIN [Concomitant]
  2. GLIMEPIRIDE [Suspect]
     Indication: TYPE 2 DIABETES MELLITUS
     Route: 048
     Dates: start: 20091103
  3. INVESTIGATIONAL DRUG [Suspect]
     Indication: TYPE 2 DIABETES MELLITUS
     Route: 058
     Dates: start: 20091222
  4. METFORMIN HCL [Suspect]
     Indication: TYPE 2 DIABETES MELLITUS
     Route: 048
  5. NITROGLYCERIN [Concomitant]
  6. CLOPIDOGREL BISULFATE [Concomitant]
  7. DRUG USED IN DIABETES [Concomitant]
  8. ALLOPURINOL [Concomitant]
  9. AMLODIPINE [Concomitant]
  10. DOXAZOSIN MESYLATE [Concomitant]

REACTIONS (4)
  - HYPOTENSION [None]
  - BRADYCARDIA [None]
  - CHEST PAIN [None]
  - MYOCARDIAL INFARCTION [None]
